FAERS Safety Report 10190243 (Version 1)
Quarter: 2014Q2

REPORT INFORMATION
  Report Type: Spontaneous
  Country: US (occurrence: None)
  Receive Date: 20140521
  Receipt Date: 20140521
  Transmission Date: 20141212
  Serious: Yes (Disabling)
  Sender: FDA-Public Use
  Company Number: None

PATIENT
  Age: 67 Year
  Sex: Male
  Weight: 90.72 kg

DRUGS (5)
  1. CHLORPROMAZINE [Suspect]
  2. HALOPERIDOL [Suspect]
  3. FLUPHENAZINE [Suspect]
  4. THIOTHIXENE [Suspect]
  5. BENZTROPINE [Suspect]

REACTIONS (3)
  - Blepharospasm [None]
  - Dystonia [None]
  - Tardive dyskinesia [None]
